FAERS Safety Report 12312460 (Version 1)
Quarter: 2016Q2

REPORT INFORMATION
  Report Type: Spontaneous
  Country: FR (occurrence: FR)
  Receive Date: 20160428
  Receipt Date: 20160428
  Transmission Date: 20160815
  Serious: Yes (Other)
  Sender: FDA-Public Use
  Company Number: FR-CIPLA LTD.-2016FR03901

PATIENT

DRUGS (2)
  1. IRINOTECAN [Suspect]
     Active Substance: IRINOTECAN
     Indication: NEOPLASM RECURRENCE
     Dosage: 340 OR 125 MG/M2, EACH CYCLE WAS REPEATED EVERY 15 DAYS
     Route: 065
  2. BEVACIZUMAB [Suspect]
     Active Substance: BEVACIZUMAB
     Indication: NEOPLASM RECURRENCE
     Dosage: 10 MG/KG, EACH CYCLE WAS REPEATED EVERY 15 DAYS
     Route: 065

REACTIONS (1)
  - Proteinuria [Unknown]
